FAERS Safety Report 7940866-1 (Version None)
Quarter: 2011Q4

REPORT INFORMATION
  Report Type: 
  Country: None (occurrence: None)
  Receive Date: 20111122
  Receipt Date: 20111110
  Transmission Date: 20120403
  Serious: Yes (Hospitalization, Other)
  Sender: FDA-Public Use
  Company Number: 2011MA016239

PATIENT
  Age: 65 Year
  Sex: Male

DRUGS (11)
  1. ACYCLOVIR [Suspect]
     Indication: HERPES ZOSTER
     Dosage: 500 MG;5X A DAY, PO
     Route: 048
  2. GLIPIZIDE [Concomitant]
  3. AMLODIPINE [Concomitant]
  4. SIMVASTATIN [Concomitant]
  5. LEVOTHYROXINE SODIUM [Concomitant]
  6. PHENYTOIN [Concomitant]
  7. LASIX [Concomitant]
  8. ASPIRIN [Concomitant]
  9. HYDRALAZINE HCL [Concomitant]
  10. BENAZEPRIL HYDROCHLORIDE [Concomitant]
  11. CALCIUM CARBONATE [Concomitant]

REACTIONS (24)
  - RASH ERYTHEMATOUS [None]
  - ENCEPHALITIS HERPES [None]
  - BALANCE DISORDER [None]
  - LIVER PALPABLE SUBCOSTAL [None]
  - DYSSTASIA [None]
  - DIALYSIS [None]
  - SOMNOLENCE [None]
  - CARDIAC MURMUR [None]
  - NYSTAGMUS [None]
  - DRUG PRESCRIBING ERROR [None]
  - SCAB [None]
  - ATAXIA [None]
  - DRUG LEVEL BELOW THERAPEUTIC [None]
  - CONFUSIONAL STATE [None]
  - SPEECH DISORDER [None]
  - OXYGEN SATURATION DECREASED [None]
  - BODY TEMPERATURE DECREASED [None]
  - BLOOD PRESSURE SYSTOLIC INCREASED [None]
  - PAPULE [None]
  - COGNITIVE DISORDER [None]
  - TOXICITY TO VARIOUS AGENTS [None]
  - MENTAL STATUS CHANGES [None]
  - RASH [None]
  - RASH PAPULAR [None]
